FAERS Safety Report 9279072 (Version 1)
Quarter: 2013Q2

REPORT INFORMATION
  Report Type: Spontaneous
  Country: US (occurrence: US)
  Receive Date: 20130508
  Receipt Date: 20130508
  Transmission Date: 20140414
  Serious: No
  Sender: FDA-Public Use
  Company Number: US-ASTRAZENECA-2013SE28509

PATIENT
  Age: 72 Year
  Sex: Male
  Weight: 77.1 kg

DRUGS (2)
  1. TENORMIN [Suspect]
     Indication: BLOOD PRESSURE ABNORMAL
     Dosage: GENERIC TENORMIN MADE BY TEVA,  25 MG, DAILY
     Route: 048
     Dates: start: 2011
  2. TENORMIN [Suspect]
     Indication: BLOOD PRESSURE ABNORMAL
     Route: 048

REACTIONS (4)
  - Counterfeit drug administered [Unknown]
  - Heart rate increased [Unknown]
  - Dysphonia [Unknown]
  - Extrasystoles [Unknown]
